FAERS Safety Report 8429996-8 (Version None)
Quarter: 2012Q2

REPORT INFORMATION
  Report Type: 
  Country: None (occurrence: None)
  Receive Date: 20120612
  Receipt Date: 20120604
  Transmission Date: 20120825
  Serious: Yes (Hospitalization)
  Sender: FDA-Public Use
  Company Number: US-BAYER-200940509NA

PATIENT
  Age: 39 Year
  Sex: Female
  Weight: 135 kg

DRUGS (14)
  1. ORAL CONTRACEPTIVE NOS [Concomitant]
  2. PHENTERMINE [Concomitant]
     Indication: WEIGHT DECREASED
  3. YAZ [Suspect]
     Indication: DYSMENORRHOEA
     Dosage: UNK
     Dates: start: 20070906, end: 20071201
  4. YAZ [Suspect]
     Indication: METABOLIC SYNDROME
  5. METFORMIN HCL [Concomitant]
     Indication: POLYCYSTIC OVARIES
     Dosage: 500 MG, UNK
     Dates: start: 20071022
  6. YASMIN [Suspect]
     Indication: DYSMENORRHOEA
  7. METOPROLOL [Concomitant]
     Dosage: UNK
     Dates: start: 20071223
  8. LOPRESSOR [Concomitant]
     Indication: HYPERTENSION
  9. DIPHTHERIA VACCINE W/ PERTUSSIS V/ TETANUS V [Concomitant]
     Dosage: UNK
     Dates: start: 20071022
  10. LIPITOR [Concomitant]
     Dosage: UNK
     Dates: start: 20071224
  11. AZITHROMYCIN [Concomitant]
     Dosage: 500 MG, UNK
     Dates: start: 20070906
  12. HYDROCODONE BITARTRATE + ACETAMINOPHEN [Concomitant]
     Dosage: UNK
     Dates: start: 20071223
  13. GLUCOPHAGE [Concomitant]
     Dosage: UNK
     Dates: start: 20071022, end: 20071224
  14. ADVIL [Concomitant]

REACTIONS (10)
  - DYSPNOEA [None]
  - PAIN IN EXTREMITY [None]
  - HYPERTENSION [None]
  - CHEST PAIN [None]
  - OEDEMA PERIPHERAL [None]
  - TACHYCARDIA [None]
  - GASTROOESOPHAGEAL REFLUX DISEASE [None]
  - HYPERHIDROSIS [None]
  - PULMONARY EMBOLISM [None]
  - DEEP VEIN THROMBOSIS [None]
